FAERS Safety Report 6278045-9 (Version None)
Quarter: 2009Q3

REPORT INFORMATION
  Report Type: 
  Country: None (occurrence: None)
  Receive Date: 20090722
  Receipt Date: 20090713
  Transmission Date: 20100115
  Serious: Yes (Hospitalization)
  Sender: FDA-Public Use
  Company Number: PHHO2009US08866

PATIENT
  Sex: Female

DRUGS (2)
  1. RAD 666 RAD+TAB [Suspect]
     Indication: BREAST CANCER
     Dosage: 30MG WEEKLY
     Route: 048
     Dates: start: 20090626
  2. CISPLATIN [Suspect]
     Indication: BREAST CANCER
     Dosage: 25MG/M2 WEEKLY
     Route: 042
     Dates: start: 20090626

REACTIONS (1)
  - INTESTINAL OBSTRUCTION [None]
